FAERS Safety Report 17149248 (Version 3)
Quarter: 2020Q1

REPORT INFORMATION
  Report Type: Spontaneous
  Country: US (occurrence: US)
  Receive Date: 20191213
  Receipt Date: 20200113
  Transmission Date: 20200409
  Serious: Yes (Hospitalization)
  Sender: FDA-Public Use
  Company Number: US-AUROBINDO-AUR-APL-2019-104654

PATIENT
  Age: 37 Year
  Sex: Female

DRUGS (1)
  1. CLOZAPINE 100 MG TABLET USP [Suspect]
     Active Substance: CLOZAPINE
     Indication: PRODUCT USED FOR UNKNOWN INDICATION
     Dosage: UNK
     Route: 065

REACTIONS (1)
  - Neutrophilia [Unknown]

NARRATIVE: CASE EVENT DATE: 20191030
